FAERS Safety Report 7961604-2 (Version None)
Quarter: 2011Q4

REPORT INFORMATION
  Report Type: 
  Country: None (occurrence: None)
  Receive Date: 20111207
  Receipt Date: 20111202
  Transmission Date: 20120403
  Serious: Yes (Other)
  Sender: FDA-Public Use
  Company Number: US-CELGENEUS-163-21880-11112151

PATIENT
  Sex: Male
  Weight: 90.8 kg

DRUGS (8)
  1. DIOVAN [Concomitant]
     Route: 065
  2. NORVASC [Concomitant]
     Route: 065
  3. SINGULAIR [Concomitant]
     Route: 065
  4. REVLIMID [Suspect]
     Dosage: 10 MILLIGRAM
     Route: 048
     Dates: start: 20111128
  5. ZOMETA [Concomitant]
     Route: 065
  6. ASPIRIN [Concomitant]
     Dosage: 81 MILLIGRAM
     Route: 065
  7. REVLIMID [Suspect]
     Indication: MULTIPLE MYELOMA
     Dosage: 25 MILLIGRAM
     Route: 048
     Dates: start: 20110331, end: 20110101
  8. COMBIVENT [Concomitant]
     Route: 065

REACTIONS (3)
  - HEPATOMEGALY [None]
  - HYPOTHYROIDISM [None]
  - LIVER FUNCTION TEST ABNORMAL [None]
